APPROVED DRUG PRODUCT: SULFAMETHOXAZOLE AND TRIMETHOPRIM
Active Ingredient: SULFAMETHOXAZOLE; TRIMETHOPRIM
Strength: 80MG/ML;16MG/ML
Dosage Form/Route: INJECTABLE;INJECTION
Application: A212231 | Product #001 | TE Code: AP
Applicant: SOMERSET THERAPEUTICS LLC
Approved: Jun 26, 2019 | RLD: No | RS: No | Type: RX